FAERS Safety Report 16712587 (Version 2)
Quarter: 2019Q4

REPORT INFORMATION
  Report Type: Report from Study
  Country: CA (occurrence: CA)
  Receive Date: 20190816
  Receipt Date: 20191115
  Transmission Date: 20200122
  Serious: Yes (Death)
  Sender: FDA-Public Use
  Company Number: CA-HLSUS-2019-CA-000908

PATIENT
  Age: 47 Year
  Sex: Female
  Weight: 138.8 kg

DRUGS (8)
  1. SENNOKOT [Concomitant]
     Indication: CONSTIPATION
  2. COLACE [Concomitant]
     Active Substance: DOCUSATE SODIUM
     Indication: CONSTIPATION
     Dates: start: 201905
  3. SYNTHROID [Concomitant]
     Active Substance: LEVOTHYROXINE SODIUM
     Indication: HYPOTHYROIDISM
  4. LUVOX [Concomitant]
     Active Substance: FLUVOXAMINE MALEATE
     Dates: start: 201905
  5. 205MG 1 PER DAY STARTED BEFORE MAY-2019 [Concomitant]
     Indication: BLOOD PRESSURE MEASUREMENT
     Dates: start: 201905
  6. XYLAC [Concomitant]
     Active Substance: LOXAPINE SUCCINATE
     Indication: SCHIZOPHRENIA
  7. CLOZARIL [Suspect]
     Active Substance: CLOZAPINE
     Indication: SCHIZOPHRENIA
     Route: 048
     Dates: start: 201709
  8. ZANTAC [Concomitant]
     Active Substance: RANITIDINE HYDROCHLORIDE
     Dates: start: 201905

REACTIONS (3)
  - Leukocytosis [Unknown]
  - Death [Fatal]
  - Neutrophilia [Unknown]

NARRATIVE: CASE EVENT DATE: 20190620
